FAERS Safety Report 9309732 (Version 3)
Quarter: 2014Q4

REPORT INFORMATION
  Report Type: Spontaneous
  Country: US (occurrence: US)
  Receive Date: 20130525
  Receipt Date: 20141205
  Transmission Date: 20150529
  Serious: No
  Sender: FDA-Public Use
  Company Number: US-BRISTOL-MYERS SQUIBB COMPANY-18586792

PATIENT
  Age: 62 Year
  Sex: Female
  Weight: 80.72 kg

DRUGS (4)
  1. BYDUREON [Suspect]
     Active Substance: EXENATIDE
     Indication: TYPE 2 DIABETES MELLITUS
     Dosage: EXPIRATION DATE:JUN2015,PRESCRIPTION:2432268-04617
     Route: 058
     Dates: start: 201301
  2. JANUVIA [Concomitant]
     Active Substance: SITAGLIPTIN PHOSPHATE
     Indication: TYPE 2 DIABETES MELLITUS
     Dosage: WITH LUNCH
     Route: 048
  3. BENCLART [Concomitant]
     Route: 048
  4. GLUCOPHAGE [Suspect]
     Active Substance: METFORMIN HYDROCHLORIDE
     Indication: TYPE 2 DIABETES MELLITUS
     Route: 048
     Dates: start: 201301

REACTIONS (12)
  - Injection site erythema [Not Recovered/Not Resolved]
  - Injection site macule [Not Recovered/Not Resolved]
  - Weight decreased [Unknown]
  - Skin discolouration [Not Recovered/Not Resolved]
  - Injection site induration [Not Recovered/Not Resolved]
  - Lethargy [Unknown]
  - Headache [Unknown]
  - Blood glucose decreased [Unknown]
  - Injection site nodule [Not Recovered/Not Resolved]
  - Tremor [Unknown]
  - Decreased appetite [Not Recovered/Not Resolved]
  - Injection site pruritus [Not Recovered/Not Resolved]

NARRATIVE: CASE EVENT DATE: 201301
